FAERS Safety Report 9375003 (Version 2)
Quarter: 2013Q3

REPORT INFORMATION
  Report Type: Spontaneous
  Country: DE (occurrence: DE)
  Receive Date: 20130628
  Receipt Date: 20130731
  Transmission Date: 20140515
  Serious: Yes (Hospitalization, Other)
  Sender: FDA-Public Use
  Company Number: PHHY2013DE066565

PATIENT
  Age: 68 Year
  Sex: Female
  Weight: 98 kg

DRUGS (4)
  1. GLIVEC [Suspect]
     Indication: GASTROINTESTINAL STROMAL TUMOUR
     Dosage: 400 MG, DAILY
     Route: 048
     Dates: start: 201003, end: 201306
  2. CLOPIDOGREL [Concomitant]
     Dosage: 75 MG, DAILY
     Route: 048
  3. FLUOXETINE [Concomitant]
     Dosage: 20 MG, DAILY
     Route: 048
  4. LEVOTHYROXINE [Concomitant]
     Dosage: 150 MG, DAILY
     Route: 048

REACTIONS (3)
  - Alveolitis [Recovering/Resolving]
  - Interstitial lung disease [Unknown]
  - Atypical pneumonia [Unknown]
